FAERS Safety Report 4841766-6 (Version None)
Quarter: 2005Q4

REPORT INFORMATION
  Report Type: 
  Country: None (occurrence: None)
  Receive Date: 20051130
  Receipt Date: 20051116
  Transmission Date: 20060501
  Serious: Yes (Other)
  Sender: FDA-Public Use
  Company Number: PHRM2005FR02994

PATIENT

DRUGS (2)
  1. MIFLASONE [Concomitant]
  2. FORADIL [Suspect]
     Indication: ASTHMA

REACTIONS (3)
  - ASTHMA [None]
  - CONDITION AGGRAVATED [None]
  - DEVICE FAILURE [None]
